FAERS Safety Report 5170179-5 (Version None)
Quarter: 2006Q4

REPORT INFORMATION
  Report Type: 
  Country: None (occurrence: None)
  Receive Date: 20061212
  Receipt Date: 20061030
  Transmission Date: 20070319
  Serious: Yes (Other)
  Sender: FDA-Public Use
  Company Number: DE-ELI_LILLY_AND_COMPANY-DE200611000729

PATIENT
  Age: 39 Year
  Sex: Female

DRUGS (4)
  1. CYMBALTA [Suspect]
     Indication: DEPRESSION
     Dosage: 30 MG, DAILY (1/D)
     Route: 048
     Dates: start: 20061010
  2. CYMBALTA [Suspect]
     Dosage: 60 MG, DAILY (1/D)
     Route: 048
     Dates: start: 20061017
  3. METOHEXAL [Concomitant]
     Indication: HYPERTENSION
  4. INSIDON [Concomitant]
     Dosage: 150 MG, UNK
     Dates: start: 20060701, end: 20061025

REACTIONS (12)
  - BLOOD PRESSURE INCREASED [None]
  - CHILLS [None]
  - DISTURBANCE IN ATTENTION [None]
  - DIZZINESS [None]
  - EMOTIONAL DISTRESS [None]
  - FATIGUE [None]
  - HEADACHE [None]
  - HOT FLUSH [None]
  - IMPAIRED DRIVING ABILITY [None]
  - MEMORY IMPAIRMENT [None]
  - NAUSEA [None]
  - TINNITUS [None]
